FAERS Safety Report 18416861 (Version 3)
Quarter: 2020Q4

REPORT INFORMATION
  Report Type: Report from Study
  Country: IT (occurrence: IT)
  Receive Date: 20201022
  Receipt Date: 20201207
  Transmission Date: 20210114
  Serious: Yes (Other)
  Sender: FDA-Public Use
  Company Number: IT-MYLANLABS-2020M1088769

PATIENT
  Age: 38 Year
  Sex: Female
  Weight: 71 kg

DRUGS (8)
  1. PACLITAXEL. [Suspect]
     Active Substance: PACLITAXEL
     Indication: HER2 POSITIVE BREAST CANCER
     Dosage: 160 MILLIGRAM (LAST DOSE BEFORE SAE ON 28/APR/2020, 6 CYCLES (12 DOSES))
     Route: 042
     Dates: start: 20191231, end: 20200428
  2. ATEZOLIZUMAB. [Suspect]
     Active Substance: ATEZOLIZUMAB
     Dosage: 1200 MILLIGRAM, Q3W (LAST DOSE BEFORE SAE ON 25/AUG/2020, 10 CYCLES)
     Route: 041
     Dates: start: 20191231, end: 20200825
  3. TAMOXIFEN [Concomitant]
     Active Substance: TAMOXIFEN
     Dosage: UNK
     Dates: start: 20200601, end: 20200824
  4. PERTUZUMAB. [Suspect]
     Active Substance: PERTUZUMAB
     Indication: HER2 POSITIVE BREAST CANCER
     Dosage: 420 MILLIGRAM (LAST DOSE BEFORE SAE ON 25/AUG/2020, 10 CYCLES)
     Route: 042
     Dates: start: 20191231
  5. TRASTUZUMAB. [Suspect]
     Active Substance: TRASTUZUMAB
     Indication: HER2 POSITIVE BREAST CANCER
     Dosage: 426 MILLIGRAM (LAST DOSE BEFORE SAE ON 25/AUG/2020, 10 CYCLES)
     Route: 042
     Dates: start: 20191231
  6. ATEZOLIZUMAB. [Suspect]
     Active Substance: ATEZOLIZUMAB
     Indication: HER2 POSITIVE BREAST CANCER
     Dosage: 1200 MILLIGRAM, Q3W (LAST DOSE BEFORE SAE ON 05/AUG/2020, 10 CYCLES)
     Route: 042
     Dates: start: 20191231, end: 20200805
  7. LEVOFLOXACIN. [Concomitant]
     Active Substance: LEVOFLOXACIN
     Indication: SEROMA
     Dosage: UNK
     Dates: start: 20200604, end: 20200701
  8. CARBOPLATINUM [Suspect]
     Active Substance: CARBOPLATIN
     Indication: HER2 POSITIVE BREAST CANCER
     Dosage: 220 MILLIGRAM (LAST DOSE BEFORE SAE ON 28/APR/2020, 6 CYCLES (12 DOSES))
     Route: 042
     Dates: start: 20190831, end: 20200428

REACTIONS (1)
  - Tenosynovitis [Not Recovered/Not Resolved]

NARRATIVE: CASE EVENT DATE: 20200918
